FAERS Safety Report 19312116 (Version 1)
Quarter: 2021Q2

REPORT INFORMATION
  Report Type: Spontaneous
  Country: DE (occurrence: DE)
  Receive Date: 20210527
  Receipt Date: 20210527
  Transmission Date: 20210717
  Serious: Yes (Other)
  Sender: FDA-Public Use
  Company Number: DE-TEVA-2021-DE-1914685

PATIENT
  Age: 31 Year
  Sex: Female
  Weight: 71 kg

DRUGS (1)
  1. DULOXETIN [Suspect]
     Active Substance: DULOXETINE
     Indication: DEPRESSION
     Dosage: 60MG
     Route: 048
     Dates: start: 20181001, end: 20200216

REACTIONS (9)
  - Autoimmune thyroiditis [Recovered/Resolved with Sequelae]
  - Disturbance in attention [Recovered/Resolved with Sequelae]
  - Thinking abnormal [Recovered/Resolved with Sequelae]
  - Goitre [Recovered/Resolved with Sequelae]
  - Metabolic disorder [Recovered/Resolved with Sequelae]
  - Mood swings [Recovered/Resolved with Sequelae]
  - Dysphonia [Recovered/Resolved with Sequelae]
  - Dysphagia [Recovered/Resolved with Sequelae]
  - Hormone level abnormal [Recovered/Resolved with Sequelae]

NARRATIVE: CASE EVENT DATE: 20181104
